FAERS Safety Report 18355488 (Version 4)
Quarter: 2020Q4

REPORT INFORMATION
  Report Type: Report from Study
  Country: None (occurrence: US)
  Receive Date: 20201007
  Receipt Date: 20201104
  Transmission Date: 20210114
  Serious: No
  Sender: FDA-Public Use
  Company Number: US-BIOVITRUM-2020US5282

PATIENT
  Sex: Female

DRUGS (32)
  1. PANTOPRAZOLE [Concomitant]
     Active Substance: PANTOPRAZOLE
  2. ZOFRAN [Concomitant]
     Active Substance: ONDANSETRON HYDROCHLORIDE
  3. HUMULIN R [Concomitant]
     Active Substance: INSULIN HUMAN
  4. LANTUS [Concomitant]
     Active Substance: INSULIN GLARGINE
  5. IRON [Concomitant]
     Active Substance: IRON
  6. MIRALAX [Concomitant]
     Active Substance: POLYETHYLENE GLYCOL 3350
  7. GRAPE SEED W/ RESVERATROL AND VITAMIN C [Concomitant]
  8. GABAPENTIN. [Concomitant]
     Active Substance: GABAPENTIN
  9. KCL [Concomitant]
     Active Substance: POTASSIUM CHLORIDE
  10. LISINOPRIL. [Concomitant]
     Active Substance: LISINOPRIL
  11. OLUMIANT [Concomitant]
     Active Substance: BARICITINIB
  12. METFORMIN [Concomitant]
     Active Substance: METFORMIN HYDROCHLORIDE
  13. TYLENOL [Concomitant]
     Active Substance: ACETAMINOPHEN
  14. CULTURELLE [Concomitant]
     Active Substance: LACTOBACILLUS RHAMNOSUS
  15. XYZAL [Concomitant]
     Active Substance: LEVOCETIRIZINE DIHYDROCHLORIDE
  16. VITAMIN D3 [Concomitant]
     Active Substance: CHOLECALCIFEROL
  17. BIOTIN [Concomitant]
     Active Substance: BIOTIN
  18. CALTRATE D3 [Concomitant]
  19. KINERET [Suspect]
     Active Substance: ANAKINRA
     Indication: RHEUMATOID ARTHRITIS
     Dosage: 100 MG/0.67ML
     Route: 058
     Dates: start: 20200927
  20. FOLIC ACID. [Concomitant]
     Active Substance: FOLIC ACID
  21. ESTRADIOL. [Concomitant]
     Active Substance: ESTRADIOL
  22. CARTIA [Concomitant]
  23. COENZYME Q10 [Concomitant]
     Active Substance: DIETARY SUPPLEMENT\UBIDECARENONE
  24. MAGNESIUM [Concomitant]
     Active Substance: MAGNESIUM
  25. NYSTATIN POWDER [Concomitant]
     Active Substance: NYSTATIN
  26. WARFARIN [Concomitant]
     Active Substance: WARFARIN
  27. FUROSEMIDE. [Concomitant]
     Active Substance: FUROSEMIDE
  28. BREO ELLIPTA [Concomitant]
     Active Substance: FLUTICASONE FUROATE\VILANTEROL TRIFENATATE
  29. KINERET [Suspect]
     Active Substance: ANAKINRA
     Route: 058
     Dates: start: 20200924
  30. ROSUVASTATIN. [Concomitant]
     Active Substance: ROSUVASTATIN
  31. SUPER B COMPLEX [Concomitant]
     Active Substance: CYANOCOBALAMIN\DEXPANTHENOL\NIACINAMIDE\PYRIDOXINE HYDROCHLORIDE\RIBOFLAVIN 5^-PHOSPHATE SODIUM\THIAMINE HYDROCHLORIDE\VITAMIN B COMPLEX
  32. FLECANAIDE [Concomitant]

REACTIONS (4)
  - Condition aggravated [Unknown]
  - Injection site pain [Unknown]
  - Paradoxical drug reaction [Unknown]
  - Drug ineffective [Unknown]
